FAERS Safety Report 14709928 (Version 1)
Quarter: 2018Q2

REPORT INFORMATION
  Report Type: Spontaneous
  Country: US (occurrence: US)
  Receive Date: 20180403
  Receipt Date: 20180403
  Transmission Date: 20180711
  Serious: No
  Sender: FDA-Public Use
  Company Number: US-BAYER-2018-056565

PATIENT
  Age: 23 Year
  Sex: Female
  Weight: 51.97 kg

DRUGS (2)
  1. IRON SUPPLEMENT [Concomitant]
     Active Substance: IRON
     Dosage: UNK
  2. ALEVE [Suspect]
     Active Substance: NAPROXEN SODIUM
     Indication: PAIN
     Dosage: 1 TAB Q12H
     Route: 048
     Dates: end: 20180321

REACTIONS (3)
  - Product use issue [Unknown]
  - Product prescribing issue [Unknown]
  - Feeling abnormal [Unknown]
